FAERS Safety Report 4268919-2 (Version None)
Quarter: 2004Q1

REPORT INFORMATION
  Report Type: 
  Country: None (occurrence: None)
  Receive Date: 20040112
  Receipt Date: 20040112
  Transmission Date: 20041129
  Serious: Yes (Other)
  Sender: FDA-Public Use
  Company Number: None

PATIENT
  Age: 47 Year
  Sex: Female
  Weight: 62.1428 kg

DRUGS (2)
  1. AVELOX [Suspect]
     Indication: EAR PAIN
     Dosage: ONE TABLET PER DAY ORAL
     Route: 048
     Dates: start: 20040103, end: 20040104
  2. AVELOX [Suspect]
     Indication: PHARYNGOLARYNGEAL PAIN
     Dosage: ONE TABLET PER DAY ORAL
     Route: 048
     Dates: start: 20040103, end: 20040104

REACTIONS (6)
  - ANXIETY [None]
  - ARTHRALGIA [None]
  - DRY MOUTH [None]
  - INSOMNIA [None]
  - OEDEMA PERIPHERAL [None]
  - RASH [None]
